FAERS Safety Report 24750837 (Version 2)
Quarter: 2024Q4

REPORT INFORMATION
  Report Type: Report from Study
  Country: ES (occurrence: ES)
  Receive Date: 20241219
  Receipt Date: 20241224
  Transmission Date: 20250115
  Serious: Yes (Hospitalization)
  Sender: ABBVIE
  Company Number: ES-ABBVIE-6044530

PATIENT
  Age: 68 Year
  Sex: Female
  Weight: 86 kg

DRUGS (5)
  1. RISANKIZUMAB [Suspect]
     Active Substance: RISANKIZUMAB
     Indication: Crohn^s disease
     Route: 058
     Dates: start: 20241001
  2. RISANKIZUMAB [Suspect]
     Active Substance: RISANKIZUMAB
     Indication: Crohn^s disease
     Route: 042
     Dates: start: 20240711, end: 20240903
  3. SINTROM [Concomitant]
     Active Substance: ACENOCOUMAROL
     Indication: Antiphospholipid syndrome
     Dosage: MG
     Route: 048
     Dates: start: 202211
  4. CARVEDILOL [Concomitant]
     Active Substance: CARVEDILOL
     Indication: Antiphospholipid syndrome
     Route: 048
     Dates: start: 202406
  5. WARFARIN [Concomitant]
     Active Substance: WARFARIN
     Indication: Antiphospholipid syndrome
     Dosage: MG
     Route: 048
     Dates: start: 20240918

REACTIONS (1)
  - Pneumonia [Recovered/Resolved]

NARRATIVE: CASE EVENT DATE: 20241202
